FAERS Safety Report 9556584 (Version 2)
Quarter: 2013Q4

REPORT INFORMATION
  Report Type: Spontaneous
  Country: US (occurrence: US)
  Receive Date: 20130926
  Receipt Date: 20131009
  Transmission Date: 20140711
  Serious: No
  Sender: FDA-Public Use
  Company Number: US-PFIZER INC-2013275061

PATIENT
  Age: 67 Year
  Sex: Female

DRUGS (5)
  1. ZOLOFT [Suspect]
     Dosage: UNK
  2. SPIRIVA [Suspect]
     Dosage: UNK
  3. HYDROCODONE [Suspect]
     Dosage: UNK
  4. NEXIUM [Suspect]
     Dosage: UNK
  5. CODEINE [Suspect]
     Dosage: UNK

REACTIONS (1)
  - Drug hypersensitivity [Unknown]
